FAERS Safety Report 4984685-7 (Version None)
Quarter: 2006Q2

REPORT INFORMATION
  Report Type: 
  Country: None (occurrence: None)
  Receive Date: 20060427
  Receipt Date: 20050120
  Transmission Date: 20061013
  Serious: Yes (Hospitalization, Disabling)
  Sender: FDA-Public Use
  Company Number: US-MERCK-0507USA00377

PATIENT
  Age: 63 Year
  Sex: Female
  Weight: 66 kg

DRUGS (2)
  1. VIOXX [Suspect]
     Indication: ARTHRALGIA
     Route: 048
     Dates: start: 19991006, end: 20021022
  2. TYLENOL (CAPLET) [Concomitant]
     Route: 065

REACTIONS (3)
  - BREAST FIBROMA [None]
  - CEREBROVASCULAR ACCIDENT [None]
  - DEPRESSION [None]
